FAERS Safety Report 6101202-9 (Version None)
Quarter: 2009Q1

REPORT INFORMATION
  Report Type: 
  Country: None (occurrence: None)
  Receive Date: 20090304
  Receipt Date: 20090225
  Transmission Date: 20090719
  Serious: Yes (Other)
  Sender: FDA-Public Use
  Company Number: US-ALLERGAN-0902478US

PATIENT
  Sex: Female

DRUGS (1)
  1. REFRESH TEARS [Suspect]
     Indication: DRY EYE
     Dosage: UNK, PRN
     Route: 047
     Dates: end: 20090223

REACTIONS (3)
  - EYE INFECTION BACTERIAL [None]
  - EYE IRRITATION [None]
  - OCULAR HYPERAEMIA [None]
